FAERS Safety Report 7693174-0 (Version None)
Quarter: 2011Q3

REPORT INFORMATION
  Report Type: 
  Country: None (occurrence: None)
  Receive Date: 20110815
  Receipt Date: 20110808
  Transmission Date: 20111222
  Serious: Yes (Hospitalization)
  Sender: FDA-Public Use
  Company Number: 1000022736

PATIENT
  Age: 54 Year
  Sex: Male
  Weight: 90.72 kg

DRUGS (1)
  1. BYSTOLIC [Suspect]
     Indication: HYPERTENSION
     Dosage: 5 MG (5 MG, 1 IN 1 D), ORAL
     Route: 048
     Dates: start: 20110805, end: 20110805

REACTIONS (4)
  - WHITE BLOOD CELL COUNT INCREASED [None]
  - CEREBROVASCULAR ACCIDENT [None]
  - RETCHING [None]
  - HYPERHIDROSIS [None]
